FAERS Safety Report 9306366 (Version 1)
Quarter: 2013Q2

REPORT INFORMATION
  Report Type: Spontaneous
  Country: CH (occurrence: CH)
  Receive Date: 20130523
  Receipt Date: 20130523
  Transmission Date: 20140414
  Serious: Yes (Hospitalization)
  Sender: FDA-Public Use
  Company Number: CH-ASTRAZENECA-2013SE34916

PATIENT
  Age: 79 Year
  Sex: Male

DRUGS (8)
  1. CRESTOR [Suspect]
     Route: 048
  2. LEPONEX [Suspect]
     Route: 048
  3. CONCOR [Suspect]
     Route: 048
  4. ENTUMIN [Suspect]
     Route: 048
  5. TEMESTA [Suspect]
     Route: 048
  6. ASPIRIN CARDIO [Concomitant]
     Route: 048
  7. PRADIF [Concomitant]
     Route: 048
  8. DETRUSITOL [Concomitant]
     Route: 048

REACTIONS (5)
  - Hepatic enzyme increased [Recovered/Resolved]
  - Extrapyramidal disorder [Recovering/Resolving]
  - Fall [Recovered/Resolved]
  - Somnolence [Recovered/Resolved]
  - Pneumonia aspiration [Recovered/Resolved]
